FAERS Safety Report 19001119 (Version 3)
Quarter: 2021Q2

REPORT INFORMATION
  Report Type: Report from Study
  Country: None (occurrence: US)
  Receive Date: 20210311
  Receipt Date: 20210519
  Transmission Date: 20210717
  Serious: Yes (Other)
  Sender: FDA-Public Use
  Company Number: US-ABBVIE-21K-163-3805142-00

PATIENT
  Age: 74 Year
  Sex: Female

DRUGS (2)
  1. HUMIRA [Suspect]
     Active Substance: ADALIMUMAB
     Indication: RHEUMATOID ARTHRITIS
     Route: 058
     Dates: end: 2021
  2. HUMIRA [Suspect]
     Active Substance: ADALIMUMAB
     Indication: UVEITIS
     Route: 058
     Dates: start: 2021

REACTIONS (15)
  - Asthenia [Unknown]
  - Wrong technique in product usage process [Unknown]
  - Urinary bladder haemorrhage [Unknown]
  - Loss of consciousness [Unknown]
  - Urinary bladder haemorrhage [Recovered/Resolved]
  - Hypotension [Not Recovered/Not Resolved]
  - Dehydration [Unknown]
  - Formication [Unknown]
  - Escherichia infection [Not Recovered/Not Resolved]
  - Blood count abnormal [Unknown]
  - Fall [Unknown]
  - Bladder cyst [Unknown]
  - Bladder pain [Not Recovered/Not Resolved]
  - Device issue [Unknown]
  - Musculoskeletal disorder [Unknown]

NARRATIVE: CASE EVENT DATE: 2018
